FAERS Safety Report 6316939-6 (Version None)
Quarter: 2009Q3

REPORT INFORMATION
  Report Type: 
  Country: None (occurrence: None)
  Receive Date: 20090820
  Receipt Date: 20090818
  Transmission Date: 20100115
  Serious: Yes (Life-Threatening, Other)
  Sender: FDA-Public Use
  Company Number: DK-B.I. PHARMACEUTICALS,INC./RIDGEFIELD-2009-SW-00195DB

PATIENT

DRUGS (2)
  1. CATAPRES [Suspect]
     Dosage: FORMULATION: INJECTION, STRENGTH: 0.15 MG/ML, DOSAGE: ABOUT 10 TIME HIGHER THAN NORMAL
  2. CATAPRESAN [Concomitant]

REACTIONS (2)
  - ATRIOVENTRICULAR BLOCK [None]
  - MEDICATION ERROR [None]
